FAERS Safety Report 11258059 (Version 1)
Quarter: 2015Q3

REPORT INFORMATION
  Report Type: Spontaneous
  Country: US (occurrence: None)
  Receive Date: 20150708
  Receipt Date: 20150708
  Transmission Date: 20151125
  Serious: Yes (Hospitalization, Other)
  Sender: FDA-Public Use
  Company Number: US-SEPTODONT-201502897

PATIENT
  Age: 86 Year
  Sex: Female
  Weight: 68 kg

DRUGS (16)
  1. (ATENOLOL) [Concomitant]
  2. OMEPRAZOLE (OMEPRAZOLE) [Concomitant]
     Active Substance: OMEPRAZOLE
  3. VITAMIN D (VITAMIN D NOS) [Concomitant]
  4. (PRAMIPEXOLE) [Concomitant]
  5. (CHROMIUM PICOLINATE) [Concomitant]
  6. NUTRITION NOW PB 8 (LACTOBACILLUS ACIDOPHILLUS; LACTOBACILLUS RHAMNOSUS; LACTOBACILLUS CASEL; LACTOBACILLUS CULTURES; BIFIDOBACTERIUM BIFIDUM; BIFIDOBACTERIUM LONGUM) [Concomitant]
  7. (SACCHAROMYCES BOULARDII LYOPHILISED) [Concomitant]
  8. SEPTOCAINE AND EPINEPHRINE [Suspect]
     Active Substance: ARTICAINE HYDROCHLORIDE\EPINEPHRINE BITARTRATE
     Indication: LOCAL ANAESTHESIA
     Route: 004
     Dates: start: 20150318, end: 20150318
  9. (ENALAPRIL) [Concomitant]
  10. TRIPLEFLEX (GLUCOSAMINE HYDROCHLORIDE; CHONDROITIN SULFATE; METHYLSULFONYLMETHANE) [Concomitant]
  11. MULTIVITAMIN NOS (MULTIVITAMIN NOS) [Concomitant]
  12. (LEVOTHYROXINE) [Concomitant]
  13. VALIUM [Concomitant]
     Active Substance: DIAZEPAM
  14. (FISH OIL RICH IN OMEGA-3-ACIDS) [Concomitant]
  15. (POTASSIUM) [Concomitant]
  16. CALCIUM MAGNESIUM WITH VITAMIN D (CALCIUM; MAGNESIUM; VITAMIN D) [Concomitant]

REACTIONS (10)
  - Tonic clonic movements [None]
  - Dizziness [None]
  - Dystonia [None]
  - Hyponatraemia [None]
  - Myoclonus [None]
  - Hypertension [None]
  - Syncope [None]
  - Muscular weakness [None]
  - Movement disorder [None]
  - Feeling abnormal [None]

NARRATIVE: CASE EVENT DATE: 20150318
